FAERS Safety Report 10057564 (Version 1)
Quarter: 2014Q2

REPORT INFORMATION
  Report Type: Report from Study
  Country: US (occurrence: US)
  Receive Date: 20140404
  Receipt Date: 20140404
  Transmission Date: 20141212
  Serious: Yes (Other)
  Sender: FDA-Public Use
  Company Number: PHEH2014US006423

PATIENT
  Sex: Female

DRUGS (3)
  1. SANDOSTATIN LAR DEPOT [Suspect]
     Indication: ACROMEGALY
     Dosage: 30 MG, UNK
  2. SANDOSTATIN LAR DEPOT [Suspect]
     Indication: PITUITARY TUMOUR BENIGN
  3. SANDOSTATIN LAR DEPOT [Suspect]
     Indication: GIGANTISM

REACTIONS (1)
  - Brain neoplasm [Unknown]
